FAERS Safety Report 12812304 (Version 2)
Quarter: 2016Q4

REPORT INFORMATION
  Report Type: Spontaneous
  Country: DE (occurrence: DE)
  Receive Date: 20161005
  Receipt Date: 20161103
  Transmission Date: 20170207
  Serious: Yes (Other)
  Sender: FDA-Public Use
  Company Number: PHHY2016DE135738

PATIENT
  Age: 55 Year
  Sex: Female

DRUGS (1)
  1. COSENTYX [Suspect]
     Active Substance: SECUKINUMAB
     Indication: PSORIASIS
     Dosage: 300 MG, QMO
     Route: 058
     Dates: start: 20160317, end: 201609

REACTIONS (7)
  - Pruritus [Unknown]
  - Drug eruption [Unknown]
  - Lupus-like syndrome [Unknown]
  - Erythema [Recovering/Resolving]
  - Psoriasis [Recovering/Resolving]
  - Flushing [Unknown]
  - Skin erosion [Recovering/Resolving]

NARRATIVE: CASE EVENT DATE: 20160918
